FAERS Safety Report 20430275 (Version 1)
Quarter: 2022Q1

REPORT INFORMATION
  Report Type: Spontaneous
  Country: FR (occurrence: FR)
  Receive Date: 20220204
  Receipt Date: 20220204
  Transmission Date: 20220423
  Serious: Yes (Hospitalization, Other)
  Sender: FDA-Public Use
  Company Number: FR-AUROBINDO-AUR-APL-2020-039008

PATIENT
  Age: 41 Year
  Sex: Male

DRUGS (1)
  1. ALBUTEROL [Suspect]
     Active Substance: ALBUTEROL
     Indication: Asthma
     Dosage: SEVERAL PUFFS

REACTIONS (8)
  - Respiratory arrest [Recovered/Resolved]
  - Acute respiratory distress syndrome [Recovered/Resolved]
  - Cyanosis [Recovered/Resolved]
  - Bronchospasm paradoxical [Recovered/Resolved]
  - Hypersensitivity [Unknown]
  - Dyspnoea [Unknown]
  - Wheezing [Unknown]
  - Drug ineffective [Unknown]
